FAERS Safety Report 23673683 (Version 1)
Quarter: 2024Q1

REPORT INFORMATION
  Report Type: Spontaneous
  Country: US (occurrence: US)
  Receive Date: 20240326
  Receipt Date: 20240326
  Transmission Date: 20240410
  Serious: No
  Sender: FDA-Public Use
  Company Number: US-Accord-396437

PATIENT
  Sex: Female
  Weight: 40.82 kg

DRUGS (1)
  1. TACROLIMUS [Suspect]
     Active Substance: TACROLIMUS
     Indication: Genital pain
     Dosage: APPLY TO AFFECTED AREA TWICE DAILY?STRENGTH: 0.03%
     Route: 061
     Dates: start: 202312

REACTIONS (2)
  - Skin burning sensation [Recovered/Resolved]
  - Off label use [Unknown]
